FAERS Safety Report 21302001 (Version 3)
Quarter: 2023Q1

REPORT INFORMATION
  Report Type: Report from Study
  Country: US (occurrence: US)
  Receive Date: 20220907
  Receipt Date: 20230201
  Transmission Date: 20230417
  Serious: Yes (Death)
  Sender: FDA-Public Use
  Company Number: US-GLAXOSMITHKLINE-US2022GSK127884

PATIENT

DRUGS (31)
  1. NIRAPARIB [Suspect]
     Active Substance: NIRAPARIB
     Indication: Hormone receptor positive breast cancer
     Dosage: 200 MG, QD (ONCE DAILY AT NIGHT)
     Route: 048
     Dates: start: 20220718, end: 20220831
  2. NIRAPARIB [Suspect]
     Active Substance: NIRAPARIB
     Indication: HER2 negative breast cancer
  3. PROVENTIL [Suspect]
     Active Substance: ALBUTEROL
     Indication: Asthma
     Dosage: 90 UG, PRN
     Route: 055
     Dates: start: 1995
  4. PROVENTIL [Suspect]
     Active Substance: ALBUTEROL
     Indication: Sinus disorder
  5. PROVENTIL [Suspect]
     Active Substance: ALBUTEROL
     Indication: Rhinitis allergic
  6. ABEMACICLIB [Suspect]
     Active Substance: ABEMACICLIB
     Indication: Hormone receptor positive breast cancer
     Dosage: 150 MG, BID
     Route: 048
     Dates: start: 20220718, end: 20220901
  7. ABEMACICLIB [Suspect]
     Active Substance: ABEMACICLIB
     Indication: HER2 negative breast cancer
  8. CRESTOR [Concomitant]
     Active Substance: ROSUVASTATIN CALCIUM
     Indication: Hyperlipidaemia
     Dosage: 20 MG, QD
     Route: 048
     Dates: start: 2012
  9. VAGIFEM [Concomitant]
     Active Substance: ESTRADIOL
     Indication: Menopause
     Dosage: 10 ?G, WE
     Route: 067
     Dates: start: 2016, end: 20220715
  10. MIRABEGRON [Concomitant]
     Active Substance: MIRABEGRON
     Indication: Incontinence
     Dosage: 50 MG, QD
     Route: 048
     Dates: start: 2017, end: 202207
  11. EFFEXOR [Concomitant]
     Active Substance: VENLAFAXINE HYDROCHLORIDE
     Indication: Anxiety
     Dosage: 150 MG, QD
     Route: 048
     Dates: start: 2012
  12. VALTREX [Concomitant]
     Active Substance: VALACYCLOVIR HYDROCHLORIDE
     Indication: Herpes virus infection
     Dosage: 500 MG, PRN
     Route: 048
     Dates: start: 2012
  13. MEGARED [Concomitant]
     Indication: Supplementation therapy
     Dosage: 750 MG, QD
     Route: 048
     Dates: start: 2012
  14. ALLEGRA [Concomitant]
     Active Substance: FEXOFENADINE HYDROCHLORIDE
     Indication: Sinus disorder
     Dosage: 180 ?G, QD
     Route: 048
     Dates: start: 1977
  15. ALLEGRA [Concomitant]
     Active Substance: FEXOFENADINE HYDROCHLORIDE
     Indication: Rhinitis allergic
  16. AZELASTINE [Concomitant]
     Active Substance: AZELASTINE
     Indication: Sinus disorder
     Dosage: 15 %, QD
     Route: 055
     Dates: start: 2017
  17. AZELASTINE [Concomitant]
     Active Substance: AZELASTINE
     Indication: Rhinitis allergic
  18. SINGULAIR [Concomitant]
     Active Substance: MONTELUKAST SODIUM
     Indication: Sinus disorder
     Dosage: 10 MG, QD
     Route: 048
     Dates: start: 1995
  19. SINGULAIR [Concomitant]
     Active Substance: MONTELUKAST SODIUM
     Indication: Rhinitis allergic
  20. SUDOGEST [Concomitant]
     Active Substance: PSEUDOEPHEDRINE HYDROCHLORIDE
     Indication: Sinus disorder
     Dosage: 30 MG, PRN
     Route: 048
     Dates: start: 1995
  21. SUDOGEST [Concomitant]
     Active Substance: PSEUDOEPHEDRINE HYDROCHLORIDE
     Indication: Rhinitis allergic
  22. MIRALAX [Concomitant]
     Active Substance: POLYETHYLENE GLYCOL 3350
     Indication: Constipation
     Dosage: 17 G, QD
     Route: 048
     Dates: start: 20211029
  23. LETROZOLE [Concomitant]
     Active Substance: LETROZOLE
     Indication: Breast cancer
     Dosage: 2.5 MG, QD
     Route: 048
     Dates: start: 20220625
  24. DEVICE [Concomitant]
     Active Substance: DEVICE
     Indication: Sleep apnoea syndrome
     Dosage: UNK, QD
     Dates: start: 2015
  25. CANNABIDIOL [Concomitant]
     Active Substance: CANNABIDIOL
     Indication: Arthralgia
     Dosage: UNK, PRN
     Route: 048
     Dates: start: 202110
  26. PAXLOVID [Concomitant]
     Active Substance: NIRMATRELVIR\RITONAVIR
     Indication: COVID-19
     Dosage: 300 MG, BID
     Route: 048
     Dates: start: 20220721, end: 20220725
  27. AMOXICILLIN [Concomitant]
     Active Substance: AMOXICILLIN
     Indication: Tooth infection
     Dosage: 250ML / 5ML, BID
     Route: 048
     Dates: start: 20220801, end: 20220813
  28. NYSTATIN [Concomitant]
     Active Substance: NYSTATIN
     Indication: Candida infection
     Dosage: 100/00 UNIT/ML, QID
     Route: 048
     Dates: start: 20220801
  29. IMODIUM [Concomitant]
     Active Substance: LOPERAMIDE HYDROCHLORIDE
     Indication: Diarrhoea
     Dosage: 2 MG, PRN
     Route: 048
     Dates: start: 20220727
  30. PRILOSEC [Concomitant]
     Active Substance: OMEPRAZOLE MAGNESIUM
     Indication: Oropharyngeal pain
     Dosage: 20 MG, QD
     Route: 048
     Dates: start: 20220802
  31. BIOTENE NOS [Concomitant]
     Active Substance: CETYLPYRIDINIUM CHLORIDE OR SODIUM FLUORIDE OR SODIUM MONOFLUOROPHOSPHATE OR GLUCOSE OXIDASE\LACTOFE
     Indication: Dry mouth
     Dosage: UNK, PRN
     Route: 048
     Dates: start: 20220729

REACTIONS (1)
  - Arrhythmia [Fatal]
